FAERS Safety Report 13905751 (Version 3)
Quarter: 2017Q3

REPORT INFORMATION
  Report Type: Spontaneous
  Country: JP (occurrence: JP)
  Receive Date: 20170825
  Receipt Date: 20170929
  Transmission Date: 20171127
  Serious: Yes (Hospitalization, Other)
  Sender: FDA-Public Use
  Company Number: JP-GLAXOSMITHKLINE-JP2017JPN130354

PATIENT
  Age: 75 Year
  Sex: Female
  Weight: 43 kg

DRUGS (3)
  1. REBAMIPIDE [Concomitant]
     Active Substance: REBAMIPIDE
     Dosage: 100 MG, TID
  2. VALTREX [Suspect]
     Active Substance: VALACYCLOVIR HYDROCHLORIDE
     Indication: HERPES ZOSTER
     Dosage: 1000 MG, TID
     Route: 048
     Dates: start: 20170816, end: 20170817
  3. LOXOPROFEN SODIUM HYDRATE [Concomitant]
     Active Substance: LOXOPROFEN SODIUM DIHYDRATE
     Dosage: 60 MG, TID
     Dates: start: 20170816

REACTIONS (7)
  - Renal impairment [Recovering/Resolving]
  - Altered state of consciousness [Recovered/Resolved]
  - Amnesia [Recovered/Resolved]
  - Toxic encephalopathy [Recovering/Resolving]
  - Gait disturbance [Recovered/Resolved]
  - Nausea [Recovered/Resolved]
  - Hypophagia [Recovering/Resolving]

NARRATIVE: CASE EVENT DATE: 201708
